FAERS Safety Report 8833900 (Version 1)
Quarter: 2012Q4

REPORT INFORMATION
  Report Type: 
  Country: US (occurrence: US)
  Receive Date: 20121010
  Receipt Date: 20121010
  Transmission Date: 20130627
  Serious: Yes (Other)
  Sender: FDA-Public Use
  Company Number: PHHY2012US087589

PATIENT
  Age: 76 Year
  Sex: Male

DRUGS (1)
  1. ASCRIPTIN BUFFERED REG STRENGTH TABLETS [Suspect]
     Indication: CARDIAC DISORDER
     Dosage: 1 DF, daily
     Route: 048
     Dates: start: 1984

REACTIONS (2)
  - Myocardial infarction [Recovered/Resolved]
  - Incorrect drug administration duration [Unknown]
